FAERS Safety Report 25252349 (Version 1)
Quarter: 2025Q2

REPORT INFORMATION
  Report Type: Spontaneous
  Country: US (occurrence: US)
  Receive Date: 20250429
  Receipt Date: 20250429
  Transmission Date: 20250716
  Serious: No
  Sender: MERCK SHARP & DOHME LLC
  Company Number: US-009507513-2274016

PATIENT
  Age: 85 Year
  Sex: Male

DRUGS (10)
  1. VERQUVO [Suspect]
     Active Substance: VERICIGUAT
     Indication: Cardiac failure congestive
     Dosage: STRENGTH: 10 MG. 1 TABLET DAILY WITH FOOD
     Route: 048
  2. B3 [Concomitant]
  3. CILOSTAZOL [Concomitant]
     Active Substance: CILOSTAZOL
  4. PLAVIX [Concomitant]
     Active Substance: CLOPIDOGREL BISULFATE
  5. LASIX [Concomitant]
     Active Substance: FUROSEMIDE
  6. ISOSORBIDE [Concomitant]
     Active Substance: ISOSORBIDE
  7. TRADJENTA [Concomitant]
     Active Substance: LINAGLIPTIN
  8. ROSUVASTATIN [Concomitant]
     Active Substance: ROSUVASTATIN
  9. TAMSULOSIN [Concomitant]
     Active Substance: TAMSULOSIN
  10. BUMETANIDE [Concomitant]
     Active Substance: BUMETANIDE

REACTIONS (2)
  - Asthenia [Unknown]
  - Nervousness [Unknown]

NARRATIVE: CASE EVENT DATE: 20240403
